FAERS Safety Report 10031022 (Version 1)
Quarter: 2014Q1

REPORT INFORMATION
  Report Type: Spontaneous
  Country: VE (occurrence: VE)
  Receive Date: 20140324
  Receipt Date: 20140324
  Transmission Date: 20141002
  Serious: Yes (Other)
  Sender: FDA-Public Use
  Company Number: VE-AMGEN-VENSP2014019947

PATIENT
  Age: 54 Year
  Sex: Female

DRUGS (3)
  1. VECTIBIX [Suspect]
     Indication: COLON CANCER
     Dosage: 4 AMPOLES
     Route: 042
  2. VECTIBIX [Suspect]
     Indication: METASTASES TO LIVER
  3. OMEPRAZOLE [Concomitant]
     Dosage: 40 MG, QD
     Route: 048

REACTIONS (4)
  - Hepatic neoplasm [Unknown]
  - Metastases to stomach [Unknown]
  - Haematology test abnormal [Not Recovered/Not Resolved]
  - Rash [Recovered/Resolved]
